FAERS Safety Report 7939175-6 (Version None)
Quarter: 2011Q4

REPORT INFORMATION
  Report Type: 
  Country: None (occurrence: None)
  Receive Date: 20111124
  Receipt Date: 20111118
  Transmission Date: 20120403
  Serious: Yes (Death, Life-Threatening, Disabling, Other)
  Sender: FDA-Public Use
  Company Number: JP-BRISTOL-MYERS SQUIBB COMPANY-16197782

PATIENT
  Age: 63 Year
  Sex: Male

DRUGS (15)
  1. PREDNISOLONE [Concomitant]
     Dates: start: 20111001, end: 20111023
  2. FOY [Concomitant]
     Route: 042
     Dates: start: 20111017, end: 20111027
  3. VINCRISTINE [Concomitant]
     Dates: start: 20111001, end: 20111023
  4. DOPAMINE HCL [Concomitant]
     Dosage: 1DF:2ML/HR
     Route: 042
     Dates: start: 20110917, end: 20111027
  5. ONCOVIN [Concomitant]
     Indication: ACUTE LYMPHOCYTIC LEUKAEMIA
     Dosage: 1OCT,8OCT,15OCT,22OCT11
     Route: 042
     Dates: start: 20111001, end: 20111022
  6. LEUNASE [Concomitant]
     Indication: ACUTE LYMPHOCYTIC LEUKAEMIA
     Dosage: 1DF:6000 KU
     Route: 042
     Dates: start: 20111015, end: 20111024
  7. PREDNISOLONE [Concomitant]
     Indication: ACUTE LYMPHOCYTIC LEUKAEMIA
     Route: 048
     Dates: start: 20111001, end: 20111027
  8. MEROPENEM [Concomitant]
     Route: 042
     Dates: start: 20111026, end: 20111027
  9. LASIX [Concomitant]
     Route: 042
     Dates: start: 20110917, end: 20111027
  10. DIFLUCAN [Concomitant]
     Route: 042
     Dates: start: 20111024, end: 20111027
  11. ELSPAR [Concomitant]
     Dates: start: 20111001, end: 20111023
  12. SPRYCEL [Suspect]
     Indication: ACUTE LYMPHOCYTIC LEUKAEMIA
     Dosage: 70MGX2 MG/DAY
     Route: 048
     Dates: start: 20111011, end: 20111017
  13. ADRIAMYCIN PFS [Concomitant]
     Indication: ACUTE LYMPHOCYTIC LEUKAEMIA
     Dosage: 01OCT11-3OCT11,15OCT11-17OCT11
     Route: 042
     Dates: start: 20111001, end: 20111017
  14. MAXIPIME [Concomitant]
     Route: 042
     Dates: end: 20111026
  15. FUNGUARD [Concomitant]
     Route: 042
     Dates: end: 20111024

REACTIONS (10)
  - RENAL IMPAIRMENT [None]
  - PULMONARY HAEMORRHAGE [None]
  - MUSCLE HAEMORRHAGE [None]
  - ANAEMIA [None]
  - GASTROINTESTINAL HAEMORRHAGE [None]
  - NEUTROPENIA [None]
  - PLATELET COUNT DECREASED [None]
  - WHITE BLOOD CELL COUNT DECREASED [None]
  - HAEMATOCHEZIA [None]
  - DIARRHOEA [None]
